FAERS Safety Report 6299273-2 (Version None)
Quarter: 2009Q3

REPORT INFORMATION
  Report Type: 
  Country: None (occurrence: None)
  Receive Date: 20090806
  Receipt Date: 20090730
  Transmission Date: 20100115
  Serious: Yes (Hospitalization)
  Sender: FDA-Public Use
  Company Number: FR-PURDUE-GBR-2009-0005434

PATIENT
  Sex: Male

DRUGS (8)
  1. SEVREDOL TABLETS [Suspect]
     Indication: PAIN
     Dosage: UNK
     Route: 048
     Dates: end: 20090317
  2. SKENAN [Suspect]
     Indication: PAIN
     Dosage: 120 MG, BID
     Route: 048
     Dates: end: 20090317
  3. RIVOTRIL [Suspect]
     Indication: PAIN
     Dosage: 25 MG/L, UNK
     Route: 048
     Dates: start: 20090303, end: 20090317
  4. RIVOTRIL [Suspect]
     Dosage: UNK
     Route: 065
     Dates: start: 20090320
  5. LYRICA [Suspect]
     Indication: PAIN
     Dosage: 150 MG, UNK
     Route: 048
     Dates: start: 20090101, end: 20090317
  6. LYRICA [Suspect]
     Dosage: UNK
     Route: 065
     Dates: start: 20090324
  7. VELCADE [Concomitant]
     Dosage: UNK
     Route: 065
     Dates: start: 20090303, end: 20090313
  8. DEXAMETHASONE [Concomitant]
     Dosage: UNK
     Route: 065
     Dates: start: 20090303, end: 20090313

REACTIONS (3)
  - MIOSIS [None]
  - RESPIRATORY DISTRESS [None]
  - SOMNOLENCE [None]
